FAERS Safety Report 6591245-3 (Version None)
Quarter: 2010Q1

REPORT INFORMATION
  Report Type: 
  Country: None (occurrence: None)
  Receive Date: 20100219
  Receipt Date: 20100215
  Transmission Date: 20100710
  Serious: Yes (Hospitalization, Other)
  Sender: FDA-Public Use
  Company Number: PHHY2010JP06326

PATIENT
  Sex: Male
  Weight: 60 kg

DRUGS (6)
  1. SIMULECT [Suspect]
     Indication: RENAL TRANSPLANT
     Dosage: 20 MG, UNK
     Route: 042
     Dates: start: 20030129, end: 20030129
  2. SIMULECT [Suspect]
     Dosage: 20 MG, UNK
     Route: 042
     Dates: start: 20030202, end: 20030202
  3. TACROLIMUS [Suspect]
     Indication: RENAL TRANSPLANT
     Dosage: 10 MG, UNK
     Route: 048
     Dates: start: 20030127
  4. CELLCEPT [Suspect]
     Indication: RENAL TRANSPLANT
     Dosage: 2000 MG, UNK
     Route: 048
     Dates: start: 20030129
  5. MEDROL [Suspect]
     Indication: RENAL TRANSPLANT
     Dosage: 16 MG, UNK
     Route: 048
     Dates: start: 20030207
  6. SOLU-MEDROL [Concomitant]
     Indication: RENAL TRANSPLANT
     Dosage: UNK
     Route: 042
     Dates: start: 20030129, end: 20030206

REACTIONS (11)
  - ABDOMINAL PAIN UPPER [None]
  - CHRONIC ALLOGRAFT NEPHROPATHY [None]
  - CYTOMEGALOVIRUS GASTRITIS [None]
  - CYTOMEGALOVIRUS INFECTION [None]
  - DIARRHOEA [None]
  - DUODENAL ULCER [None]
  - GASTROINTESTINAL HYPERMOTILITY [None]
  - KIDNEY TRANSPLANT REJECTION [None]
  - NEPHRITIS [None]
  - NEPHROLITHIASIS [None]
  - PYREXIA [None]
